FAERS Safety Report 4849361-X (Version None)
Quarter: 2005Q4

REPORT INFORMATION
  Report Type: 
  Country: None (occurrence: None)
  Receive Date: 20051207
  Receipt Date: 20051122
  Transmission Date: 20060501
  Serious: Yes (Hospitalization)
  Sender: FDA-Public Use
  Company Number: USA-2005-0021873

PATIENT
  Age: 82 Year
  Sex: Female
  Weight: 62.6 kg

DRUGS (17)
  1. MS CONTIN [Suspect]
     Dosage: 50 MG, Q12H; 30 MG, Q12H
  2. MSIR CAPSULES        (MORPHINE SULFATE) IR [Suspect]
     Dosage: 40 MG, Q4H; 15 MG, Q12H
  3. INFLIXIMAB            (INFLIXIMAB) [Suspect]
     Dosage: INTRAVENOUS
     Route: 042
     Dates: start: 20010712, end: 20011017
  4. ALLOPURINOL [Concomitant]
  5. ARAVA [Concomitant]
  6. CELEBREX [Concomitant]
  7. DETROL [Concomitant]
  8. LIPITOR [Concomitant]
  9. PLAVIX [Concomitant]
  10. PREDNISONE [Concomitant]
  11. ZYRTEC [Concomitant]
  12. ENBREL [Concomitant]
  13. PROTONIX [Concomitant]
  14. DURAGESIC-100 [Concomitant]
  15. ASPIRIN [Concomitant]
  16. FOLIC ACID [Concomitant]
  17. MULTIVITAMIN [Concomitant]

REACTIONS (4)
  - CONFUSIONAL STATE [None]
  - LOSS OF CONSCIOUSNESS [None]
  - MENTAL STATUS CHANGES [None]
  - SYNCOPE [None]
